FAERS Safety Report 19301663 (Version 1)
Quarter: 2021Q2

REPORT INFORMATION
  Report Type: Spontaneous
  Country: US (occurrence: US)
  Receive Date: 20210525
  Receipt Date: 20210525
  Transmission Date: 20210717
  Serious: No
  Sender: FDA-Public Use
  Company Number: US-SA-2021SA170296

PATIENT
  Age: 42 Year
  Sex: Female

DRUGS (2)
  1. LEMTRADA [Suspect]
     Active Substance: ALEMTUZUMAB
     Dosage: 12 MG, QD (3 DAYS)
     Dates: start: 20190910, end: 20190912
  2. LEMTRADA [Suspect]
     Active Substance: ALEMTUZUMAB
     Indication: MULTIPLE SCLEROSIS
     Dosage: 2ND CYCLE OF LEMTRADA
     Dates: start: 20210513, end: 20210514

REACTIONS (2)
  - Candida infection [Unknown]
  - Pyrexia [Unknown]

NARRATIVE: CASE EVENT DATE: 202105
